FAERS Safety Report 7283089-4 (Version None)
Quarter: 2011Q1

REPORT INFORMATION
  Report Type: 
  Country: None (occurrence: None)
  Receive Date: 20110209
  Receipt Date: 20110118
  Transmission Date: 20110831
  Serious: Yes (Hospitalization, Other)
  Sender: FDA-Public Use
  Company Number: US-ROCHE-747993

PATIENT
  Age: 61 Year
  Sex: Male
  Weight: 112 kg

DRUGS (13)
  1. CISPLATIN [Suspect]
     Dosage: DAY1 AND DAY8, LAST DOSE PRIOR TO SAE 10 JAN 2011
     Route: 042
     Dates: start: 20101015
  2. ADVIL [Concomitant]
  3. MEPERIDINE HCL [Concomitant]
  4. OMEPRAZOLE [Concomitant]
  5. ONDANSETRON [Concomitant]
  6. EFFEXOR [Concomitant]
  7. LOVASTATIN [Concomitant]
  8. BEVACIZUMAB [Suspect]
     Dosage: LAST DOSE PRIOR TO SAE: 19 NOV 2010
     Route: 042
     Dates: start: 20101015
  9. DOCETAXEL [Suspect]
     Dosage: DAY1 AND DAY8, LAST DOSE PRIOR TO SAE: 10 JAN 2011
     Route: 042
     Dates: start: 20101015
  10. IRINOTECAN [Suspect]
     Dosage: LAST DOSE PRIOR TO SAE; 10 JAN 2011
     Route: 042
     Dates: start: 20101015
  11. LISINOPRIL [Concomitant]
  12. SUDAFED 12 HOUR [Concomitant]
  13. DECADRON [Concomitant]

REACTIONS (7)
  - INTESTINAL PERFORATION [None]
  - RENAL FAILURE ACUTE [None]
  - HYPOTENSION [None]
  - DEHYDRATION [None]
  - ASTHENIA [None]
  - PERITONITIS [None]
  - DIARRHOEA [None]
